FAERS Safety Report 8282653-3 (Version None)
Quarter: 2012Q2

REPORT INFORMATION
  Report Type: 
  Country: None (occurrence: None)
  Receive Date: 20120413
  Receipt Date: 20120410
  Transmission Date: 20120825
  Serious: No
  Sender: FDA-Public Use
  Company Number: US-PFIZER INC-2012063535

PATIENT
  Sex: Male
  Weight: 100 kg

DRUGS (15)
  1. SYMBICORT [Concomitant]
     Dosage: 160-4.5 MCG/ACT AERO, (1 INH BID)
     Dates: start: 20111216
  2. CELEBREX [Suspect]
     Indication: ARTHROPATHY
     Dosage: 200 MG, 2X/DAY (1 PO BID)
     Route: 048
     Dates: start: 20111006, end: 20120305
  3. GABAPENTIN [Concomitant]
     Indication: NERVOUS SYSTEM DISORDER
     Dosage: 300 MG, 3X/DAY (1 PO TID)
     Route: 048
     Dates: start: 20070403
  4. LORTAB [Concomitant]
     Dosage: UNK, 7.5 (ONE PO Q 6 HOURS)
     Route: 048
     Dates: start: 20091002
  5. INSULIN [Concomitant]
     Dosage: IINSULIN SYRINGE, USE AS DIRECTED
     Dates: start: 20110627
  6. SIMVASTATIN [Concomitant]
     Indication: BLOOD CHOLESTEROL INCREASED
     Dosage: 40 MG, 1X/DAY (1 PO QD)
     Route: 048
     Dates: start: 20090213
  7. AMBIEN [Concomitant]
     Indication: SLEEP DISORDER
     Dosage: 10 MG, DAILY (1 PO QHS),PRN
     Route: 048
     Dates: start: 20070403
  8. TRIAMCINOLONE ACETONIDE [Concomitant]
     Dosage: 0.1% (APPLY TO AFFECTES AREA BID)
     Dates: start: 20120313
  9. FLONASE [Concomitant]
     Dosage: 50 MCG/ACT SUSP (1-2 SPRAYS TO EACH NARE QD)
     Dates: start: 20090311
  10. ARICEPT [Concomitant]
     Dosage: 10 MG, (1 PO QHS)
     Route: 048
     Dates: start: 20091002
  11. DIAZEPAM [Concomitant]
     Indication: ANXIETY
     Dosage: 2 MG, AS NEEDED (1 PO Q 6-8 HOURS)
     Route: 048
     Dates: start: 20100112
  12. IBUPROFEN [Concomitant]
     Dosage: 800 MG, 3X/DAY (1 PO TID WITH FOOD)
     Route: 048
     Dates: start: 20080604
  13. TRAMADOL HYDROCHLORIDE [Concomitant]
     Indication: PAIN
     Dosage: 50 MG, (1 PO Q 6 HOURS PRN)
     Route: 048
     Dates: start: 20100819
  14. VENTOLIN [Concomitant]
     Dosage: 108 (90 BASE) MCG/ACT AERS, (1-2 PUFFS Q 4-6 HOURS PRN)
     Dates: start: 20120313
  15. METRONIDAZOLE [Concomitant]
     Dosage: 500 MG, 3X/DAY (1 PO TID X 7 DAYS)
     Route: 048
     Dates: start: 20120313

REACTIONS (2)
  - MOVEMENT DISORDER [None]
  - PAIN [None]
